FAERS Safety Report 4739891-3 (Version None)
Quarter: 2005Q3

REPORT INFORMATION
  Report Type: 
  Country: None (occurrence: None)
  Receive Date: 20050810
  Receipt Date: 19990720
  Transmission Date: 20060218
  Serious: No
  Sender: FDA-Public Use
  Company Number: US-GLAXOSMITHKLINE-A0308874A

PATIENT
  Age: 46 Year
  Sex: Female
  Weight: 66.66 kg

DRUGS (6)
  1. PAXIL [Suspect]
     Indication: ANXIETY
     Dosage: 30MG PER DAY
     Route: 048
     Dates: start: 19980501, end: 19990701
  2. PAXIL [Suspect]
     Dosage: 20MG PER DAY
     Route: 048
     Dates: start: 19990701, end: 19990701
  3. PAXIL [Suspect]
     Dosage: 10MG PER DAY
     Route: 048
     Dates: start: 19990701, end: 19990701
  4. PAXIL [Suspect]
     Dosage: 0MG PER DAY
     Dates: start: 19990701, end: 19990701
  5. PAXIL [Suspect]
     Dosage: 10MG ALTERNATE DAYS
     Dates: start: 19990714
  6. LEVOXYL [Concomitant]

REACTIONS (11)
  - AGITATION [None]
  - ANXIETY [None]
  - DISORIENTATION [None]
  - DIZZINESS [None]
  - DRUG WITHDRAWAL SYNDROME [None]
  - HOT FLUSH [None]
  - HYPERHIDROSIS [None]
  - JUDGEMENT IMPAIRED [None]
  - NAUSEA [None]
  - PARAESTHESIA [None]
  - SENSORY DISTURBANCE [None]
